FAERS Safety Report 21785069 (Version 1)
Quarter: 2022Q4

REPORT INFORMATION
  Report Type: Spontaneous
  Country: AR (occurrence: AR)
  Receive Date: 20221227
  Receipt Date: 20221227
  Transmission Date: 20230113
  Serious: Yes (Hospitalization, Other)
  Sender: FDA-Public Use
  Company Number: AR-PFIZER INC-PV202200129175

PATIENT
  Age: 25 Year
  Sex: Male

DRUGS (1)
  1. IXIFI [Suspect]
     Active Substance: INFLIXIMAB-QBTX
     Indication: Colitis ulcerative
     Dosage: 5 MG, EVERY 4 WEEKS
     Dates: start: 20220805, end: 20221122

REACTIONS (4)
  - Colectomy [Not Recovered/Not Resolved]
  - Gastrointestinal disorder [Not Recovered/Not Resolved]
  - Off label use [Unknown]
  - Off label use [Unknown]
